FAERS Safety Report 10967564 (Version 2)
Quarter: 2015Q2

REPORT INFORMATION
  Report Type: Spontaneous
  Country: US (occurrence: US)
  Receive Date: 20150330
  Receipt Date: 20150629
  Transmission Date: 20150821
  Serious: Yes (Other)
  Sender: FDA-Public Use
  Company Number: US-PFIZER INC-2015108005

PATIENT
  Age: 83 Year
  Sex: Male
  Weight: 89 kg

DRUGS (6)
  1. LISINOPRIL. [Concomitant]
     Active Substance: LISINOPRIL
     Indication: BLOOD PRESSURE ABNORMAL
     Dosage: 10 MG, 1X/DAY
     Dates: start: 2000
  2. COREG [Concomitant]
     Active Substance: CARVEDILOL
     Indication: BLOOD PRESSURE ABNORMAL
     Dosage: 6.25 MG, 1X/DAY
     Dates: start: 2000
  3. FELDENE [Suspect]
     Active Substance: PIROXICAM
     Indication: SPONDYLITIS
     Dosage: 20 MG, 1X/DAY
     Route: 048
     Dates: start: 201501
  4. FELDENE [Suspect]
     Active Substance: PIROXICAM
     Indication: MUSCULOSKELETAL STIFFNESS
     Dosage: 20 MG, 1X/DAY (OR 10MG TWICE A DAY)
     Dates: start: 2012
  5. FELDENE [Suspect]
     Active Substance: PIROXICAM
     Indication: INFLAMMATION
     Dosage: 20 MG, 1X/DAY (ON AND OFF)
     Route: 048
     Dates: start: 2003
  6. LIPITOR [Concomitant]
     Active Substance: ATORVASTATIN CALCIUM
     Indication: BLOOD CHOLESTEROL ABNORMAL
     Dosage: 10 MG, UNK
     Dates: start: 2000

REACTIONS (7)
  - Abdominal pain [Recovered/Resolved]
  - Wrong technique in drug usage process [Recovered/Resolved]
  - Pain [Recovered/Resolved]
  - Haematochezia [Recovered/Resolved]
  - Flatulence [Recovered/Resolved]
  - Gastrointestinal disorder [Recovered/Resolved]
  - Drug ineffective [Recovered/Resolved]

NARRATIVE: CASE EVENT DATE: 2003
